FAERS Safety Report 15885720 (Version 1)
Quarter: 2019Q1

REPORT INFORMATION
  Report Type: Spontaneous
  Country: US (occurrence: US)
  Receive Date: 20190129
  Receipt Date: 20190129
  Transmission Date: 20190417
  Serious: Yes (Hospitalization, Other)
  Sender: FDA-Public Use
  Company Number: US-NAPPMUNDI-USA-2019-0145796

PATIENT
  Sex: Female

DRUGS (2)
  1. DILAUDID [Suspect]
     Active Substance: HYDROMORPHONE HYDROCHLORIDE
     Indication: PAIN
     Dosage: 1 MG, UNK
     Route: 048
  2. TRAMADOL. [Suspect]
     Active Substance: TRAMADOL
     Indication: PAIN
     Route: 048

REACTIONS (7)
  - Muscle rigidity [Unknown]
  - Abdominal pain upper [Unknown]
  - Drug withdrawal syndrome [Unknown]
  - Dyspnoea [Unknown]
  - Blood pressure increased [Unknown]
  - Catatonia [Unknown]
  - Overdose [Unknown]

NARRATIVE: CASE EVENT DATE: 2017
